FAERS Safety Report 7973662-X (Version None)
Quarter: 2011Q4

REPORT INFORMATION
  Report Type: 
  Country: None (occurrence: None)
  Receive Date: 20111213
  Receipt Date: 20111205
  Transmission Date: 20120403
  Serious: Yes (Other)
  Sender: FDA-Public Use
  Company Number: US-ELI_LILLY_AND_COMPANY-US201112001837

PATIENT
  Sex: Female

DRUGS (2)
  1. HUMALOG [Suspect]
     Indication: DIABETES MELLITUS
     Dosage: UNK UNK, PRN
  2. LANTUS [Concomitant]
     Dosage: 21 U, EACH MORNING

REACTIONS (3)
  - DRUG DOSE OMISSION [None]
  - BLOOD GLUCOSE INCREASED [None]
  - URINE KETONE BODY PRESENT [None]
